FAERS Safety Report 23773679 (Version 1)
Quarter: 2024Q2

REPORT INFORMATION
  Report Type: Spontaneous
  Country: US (occurrence: None)
  Receive Date: 20240422
  Receipt Date: 20240422
  Transmission Date: 20240716
  Serious: No
  Sender: FDA-Public Use
  Company Number: None

PATIENT
  Age: 85 Year
  Sex: Male

DRUGS (1)
  1. REPATHA [Suspect]
     Active Substance: EVOLOCUMAB
     Indication: Acute myocardial infarction
     Dosage: FREQUENCY : MONTHLY;?
     Route: 058
     Dates: start: 20240215

REACTIONS (1)
  - Death [None]

NARRATIVE: CASE EVENT DATE: 20240421
